FAERS Safety Report 5441490-5 (Version None)
Quarter: 2007Q3

REPORT INFORMATION
  Report Type: 
  Country: None (occurrence: None)
  Receive Date: 20070829
  Receipt Date: 20070820
  Transmission Date: 20080115
  Serious: Yes (Other)
  Sender: FDA-Public Use
  Company Number: 2007SP002371

PATIENT
  Age: 13 Year
  Sex: Male

DRUGS (1)
  1. CELESTAMINE TAB [Suspect]
     Indication: URTICARIA
     Dosage: 1 DF; ; PO
     Route: 048
     Dates: start: 20070128, end: 20070128

REACTIONS (1)
  - RHABDOMYOLYSIS [None]
